FAERS Safety Report 6275191-0 (Version None)
Quarter: 2009Q3

REPORT INFORMATION
  Report Type: 
  Country: None (occurrence: None)
  Receive Date: 20090721
  Receipt Date: 20070912
  Transmission Date: 20100115
  Serious: Yes (Other)
  Sender: FDA-Public Use
  Company Number: US-ASTRAZENECA-2007UW10743

PATIENT
  Age: 539 Month
  Sex: Male
  Weight: 134.7 kg

DRUGS (32)
  1. SEROQUEL [Suspect]
     Indication: ANXIETY
     Dosage: 25 - 325 MG
     Route: 048
     Dates: start: 20030317
  2. SEROQUEL [Suspect]
     Indication: DEPRESSION
     Dosage: 25 - 325 MG
     Route: 048
     Dates: start: 20030317
  3. SEROQUEL [Suspect]
     Indication: BIPOLAR DISORDER
     Dosage: 25 - 325 MG
     Route: 048
     Dates: start: 20030317
  4. SEROQUEL [Suspect]
     Dosage: 300 MG, 100 MG
     Route: 048
  5. SEROQUEL [Suspect]
     Dosage: 300 MG, 100 MG
     Route: 048
  6. SEROQUEL [Suspect]
     Dosage: 300 MG, 100 MG
     Route: 048
  7. EFFEXOR XR [Concomitant]
  8. KLONOPIN [Concomitant]
  9. ANDROGEL [Concomitant]
  10. NYSTATIN [Concomitant]
  11. ZETIA [Concomitant]
  12. LISINOPRIL [Concomitant]
  13. ATENOLOL [Concomitant]
  14. LIPITOR [Concomitant]
  15. PROTONIX [Concomitant]
  16. NEURONTIN [Concomitant]
  17. OMACOR [Concomitant]
  18. GLIPIZIDE [Concomitant]
  19. NEXIUM [Concomitant]
  20. PLAVIX [Concomitant]
  21. DYAZIDE [Concomitant]
  22. AMBIEN [Concomitant]
  23. ZYRTEC [Concomitant]
  24. PREVACID [Concomitant]
  25. TRIAMTERENE [Concomitant]
  26. LUNESTA [Concomitant]
  27. ATIVAN [Concomitant]
  28. ASPIRIN [Concomitant]
  29. HYDROCHLOROTHIAZIDE [Concomitant]
  30. LOPROX [Concomitant]
  31. GLUCOVANCE [Concomitant]
  32. GLYBURIDE [Concomitant]

REACTIONS (2)
  - DIABETES MELLITUS [None]
  - DIABETIC NEUROPATHY [None]
